FAERS Safety Report 5441299-2 (Version None)
Quarter: 2007Q3

REPORT INFORMATION
  Report Type: 
  Country: None (occurrence: None)
  Receive Date: 20070903
  Receipt Date: 20070830
  Transmission Date: 20080115
  Serious: Yes (Hospitalization)
  Sender: FDA-Public Use
  Company Number: FR-MERCK-0708FRA00058

PATIENT
  Age: 94 Year
  Sex: Female

DRUGS (10)
  1. ZOCOR [Suspect]
     Route: 048
     Dates: end: 20070814
  2. RAMIPRIL [Suspect]
     Indication: HYPERTENSION
     Route: 048
     Dates: end: 20070814
  3. FUROSEMIDE [Suspect]
     Indication: HYPERTENSION
     Route: 048
     Dates: end: 20070814
  4. FERROUS FUMARATE [Suspect]
     Indication: ANAEMIA
     Route: 048
     Dates: end: 20070814
  5. HEPARIN CALCIUM [Suspect]
     Indication: PROPHYLAXIS
     Route: 058
     Dates: end: 20070814
  6. BISOPROLOL FUMARATE [Concomitant]
     Route: 048
  7. ASPIRIN LYSINE [Concomitant]
     Indication: PROPHYLAXIS
     Route: 048
  8. PANTOPRAZOLE SODIUM [Concomitant]
     Route: 048
  9. CARBINOXAMINE MALEATE [Concomitant]
     Route: 048
  10. ACETAMINOPHEN [Concomitant]
     Route: 048

REACTIONS (1)
  - HYPONATRAEMIA [None]
